FAERS Safety Report 10263778 (Version 2)
Quarter: 2014Q3

REPORT INFORMATION
  Report Type: Spontaneous
  Country: US (occurrence: US)
  Receive Date: 20140627
  Receipt Date: 20140919
  Transmission Date: 20150326
  Serious: Yes (Other)
  Sender: FDA-Public Use
  Company Number: US-UCBSA-2014003072

PATIENT
  Age: 53 Year
  Sex: Female
  Weight: 183.7 kg

DRUGS (12)
  1. CIMZIA [Suspect]
     Active Substance: CERTOLIZUMAB PEGOL
     Indication: CROHN^S DISEASE
     Dosage: 400 MG, EV 4 WEEKS
     Dates: start: 20090126, end: 201406
  2. LIALDA [Concomitant]
     Active Substance: MESALAMINE
     Dosage: 2.4 G, 2X/DAY (BID)
     Route: 048
  3. BUDESONIDE. [Concomitant]
     Active Substance: BUDESONIDE
     Dosage: 3MG, THREE TABS, ONCE DAILY (QD),TOTAL DAILY DOSE: 9MG
     Route: 048
  4. VICODIN [Concomitant]
     Active Substance: ACETAMINOPHEN\HYDROCODONE BITARTRATE
     Indication: PAIN
     Dosage: UNK, AS NEEDED (PRN)
     Route: 048
  5. MUCINEX [Concomitant]
     Active Substance: GUAIFENESIN
  6. ADVAIR HFA [Concomitant]
     Active Substance: FLUTICASONE PROPIONATE\SALMETEROL XINAFOATE
     Dosage: 500, INHALER
  7. EPSOM SALT [Concomitant]
     Active Substance: MAGNESIUM SULFATE
     Indication: ORAL PAIN
  8. CIMZIA [Suspect]
     Active Substance: CERTOLIZUMAB PEGOL
     Dosage: 400 MG, EV 4 WEEKS
     Dates: start: 2014
  9. LASIX [Concomitant]
     Active Substance: FUROSEMIDE
     Dosage: 20 MG, 2X/DAY (BID)
     Route: 048
  10. IRON [Concomitant]
     Active Substance: IRON
     Indication: SUPPLEMENTATION THERAPY
     Dosage: UNK
     Route: 048
  11. CALCIUM [Concomitant]
     Active Substance: CALCIUM
     Indication: SUPPLEMENTATION THERAPY
     Dosage: 600 MG, ONCE DAILY (QD)
     Route: 048
  12. TRAMADOL [Concomitant]
     Active Substance: TRAMADOL
     Indication: PAIN
     Dosage: UNK, AS NEEDED (PRN)
     Route: 048

REACTIONS (4)
  - Pneumonia [Recovering/Resolving]
  - Rectal abscess [Not Recovered/Not Resolved]
  - Headache [Not Recovered/Not Resolved]
  - Oral pain [Not Recovered/Not Resolved]

NARRATIVE: CASE EVENT DATE: 201402
